FAERS Safety Report 16441508 (Version 1)
Quarter: 2019Q2

REPORT INFORMATION
  Report Type: Spontaneous
  Country: CA (occurrence: CA)
  Receive Date: 20190617
  Receipt Date: 20190617
  Transmission Date: 20190711
  Serious: Yes (Other)
  Sender: FDA-Public Use
  Company Number: CA-SAMSUNG BIOEPIS-SB-2019-15287

PATIENT
  Age: 37 Year
  Sex: Female

DRUGS (5)
  1. CELEBREX [Suspect]
     Active Substance: CELECOXIB
     Indication: PRODUCT USED FOR UNKNOWN INDICATION
     Dosage: UNKNOWN
     Route: 065
  2. BENADRYL [Suspect]
     Active Substance: DIPHENHYDRAMINE HYDROCHLORIDE
     Indication: PRODUCT USED FOR UNKNOWN INDICATION
     Dosage: UNKNOWN
     Route: 065
  3. CIMZIA [Concomitant]
     Active Substance: CERTOLIZUMAB PEGOL
     Indication: PRODUCT USED FOR UNKNOWN INDICATION
     Dosage: UNKNOWN
     Route: 058
  4. ETANERCEPT [Suspect]
     Active Substance: ETANERCEPT
     Indication: ANKYLOSING SPONDYLITIS
     Route: 065
  5. COSENTYX [Suspect]
     Active Substance: SECUKINUMAB
     Indication: PRODUCT USED FOR UNKNOWN INDICATION
     Dosage: UNKNOWN
     Route: 065

REACTIONS (12)
  - Hyperhidrosis [Unknown]
  - Pharyngeal oedema [Unknown]
  - Anaphylactic reaction [Unknown]
  - Fatigue [Unknown]
  - Abdominal discomfort [Unknown]
  - Night sweats [Unknown]
  - Tachycardia [Unknown]
  - Blood iron decreased [Unknown]
  - Urticaria [Unknown]
  - Drug resistance [Unknown]
  - Drug ineffective [Unknown]
  - Nausea [Unknown]
